FAERS Safety Report 16760593 (Version 1)
Quarter: 2019Q4

REPORT INFORMATION
  Report Type: Spontaneous
  Country: US (occurrence: US)
  Receive Date: 20190830
  Receipt Date: 20190830
  Transmission Date: 20200122
  Serious: Yes (Other)
  Sender: FDA-Public Use
  Company Number: None

PATIENT
  Age: 51 Year
  Sex: Male
  Weight: 101.25 kg

DRUGS (2)
  1. EXTRA STRENGTH HEADACHE RELIEF [Suspect]
     Active Substance: ACETAMINOPHEN\ASPIRIN\CAFFEINE
     Indication: HEADACHE
     Dosage: ?          QUANTITY:24 TABLET(S);?
     Route: 048
     Dates: start: 20190825, end: 20190827
  2. LOSARTAN. [Concomitant]
     Active Substance: LOSARTAN

REACTIONS (9)
  - Feeding disorder [None]
  - Dizziness [None]
  - Dysstasia [None]
  - Vomiting [None]
  - Cold sweat [None]
  - Nausea [None]
  - Chest pain [None]
  - Metamorphopsia [None]
  - Hypertension [None]

NARRATIVE: CASE EVENT DATE: 20190825
